FAERS Safety Report 5770073-2 (Version None)
Quarter: 2008Q2

REPORT INFORMATION
  Report Type: 
  Country: None (occurrence: None)
  Receive Date: 20080613
  Receipt Date: 20080420
  Transmission Date: 20081010
  Serious: No
  Sender: FDA-Public Use
  Company Number: US-ABBOTT-08P-163-0448112-00

PATIENT
  Sex: Male
  Weight: 78.996 kg

DRUGS (4)
  1. HUMIRA [Suspect]
     Indication: ANKYLOSING SPONDYLITIS
     Route: 058
     Dates: start: 20070801, end: 20070901
  2. HUMIRA [Suspect]
     Route: 058
     Dates: start: 20071201
  3. PREDNISONE TAB [Concomitant]
     Indication: ANKYLOSING SPONDYLITIS
     Route: 048
     Dates: start: 19960101
  4. TOO MANY TO LIST [Concomitant]
     Indication: DRUG USE FOR UNKNOWN INDICATION

REACTIONS (6)
  - INJURY [None]
  - MUSCLE ATROPHY [None]
  - NERVE COMPRESSION [None]
  - ROTATOR CUFF SYNDROME [None]
  - UNDERDOSE [None]
  - WOUND [None]
